FAERS Safety Report 24879945 (Version 1)
Quarter: 2025Q1

REPORT INFORMATION
  Report Type: Spontaneous
  Country: CN (occurrence: CN)
  Receive Date: 20250123
  Receipt Date: 20250123
  Transmission Date: 20250409
  Serious: Yes (Hospitalization)
  Sender: ALEXION PHARMACEUTICALS
  Company Number: CN-ASTRAZENECA-202501CHN016167CN

PATIENT
  Age: 33 Year
  Weight: 80 kg

DRUGS (1)
  1. DAPAGLIFLOZIN [Suspect]
     Active Substance: DAPAGLIFLOZIN
     Indication: Diabetes mellitus
     Dosage: 10 MILLIGRAM, QD

REACTIONS (7)
  - Ketosis [Recovered/Resolved]
  - Asthenia [Unknown]
  - Palpitations [Unknown]
  - Chest discomfort [Unknown]
  - Discomfort [Unknown]
  - Blood potassium decreased [Unknown]
  - Blood sodium decreased [Unknown]
